FAERS Safety Report 9848848 (Version 1)
Quarter: 2013Q4

REPORT INFORMATION
  Report Type: Spontaneous
  Country: US (occurrence: None)
  Receive Date: 20131224
  Receipt Date: 20131224
  Transmission Date: 20140711
  Serious: Yes (Other)
  Sender: FDA-Public Use
  Company Number: PHEH2013US017100

PATIENT
  Sex: 0

DRUGS (3)
  1. EXJADE (*CGP 72670*) DISPERSIBLE TABLET [Suspect]
     Indication: MYELOFIBROSIS
     Route: 048
  2. VIDAZA (AZACITIDINE) [Concomitant]
  3. JAKAFI (RUXOLITINIB PHOSPHATE) [Concomitant]

REACTIONS (3)
  - Creatinine renal clearance decreased [None]
  - Serum ferritin increased [None]
  - Blood creatinine increased [None]
